FAERS Safety Report 22222517 (Version 1)
Quarter: 2023Q2

REPORT INFORMATION
  Report Type: Spontaneous
  Country: RU (occurrence: None)
  Receive Date: 20230418
  Receipt Date: 20230418
  Transmission Date: 20230722
  Serious: Yes (Other)
  Sender: FDA-Public Use
  Company Number: RU-ROCHE-3328135

PATIENT

DRUGS (7)
  1. TRASTUZUMAB [Suspect]
     Active Substance: TRASTUZUMAB
     Indication: Breast cancer metastatic
     Dosage: (8 MG/KG LOADING DOSE IN 1 ADMINISTRATION) EVERY 3 WEEKS FROM 25/MAR/2020, 6 CYCLES.
     Route: 065
     Dates: start: 20200325, end: 202007
  2. PERTUZUMAB [Suspect]
     Active Substance: PERTUZUMAB
     Indication: Breast cancer metastatic
     Dosage: (840 MG LOADING DOSE IN 1 ADMINISTRATION) ON DAY 1, EVERY 3 WEEKS FROM 25/MAR/2020, 6 CYCLES
     Route: 065
     Dates: start: 20200325, end: 202007
  3. ADO-TRASTUZUMAB EMTANSINE [Suspect]
     Active Substance: ADO-TRASTUZUMAB EMTANSINE
     Indication: Breast cancer metastatic
     Route: 065
     Dates: start: 202108
  4. DOCETAXEL [Suspect]
     Active Substance: DOCETAXEL
     Indication: Breast cancer metastatic
     Dosage: EVERY 3 WEEKS FROM 25/MAR/2020, 6 CYCLES
     Route: 065
     Dates: start: 20200325, end: 202007
  5. CARBOPLATIN [Suspect]
     Active Substance: CARBOPLATIN
     Indication: Breast cancer metastatic
     Route: 065
     Dates: start: 20200325, end: 202007
  6. TAMOXIFEN [Suspect]
     Active Substance: TAMOXIFEN
     Indication: Breast cancer metastatic
     Route: 065
  7. ZOLEDRONIC ACID [Suspect]
     Active Substance: ZOLEDRONIC ACID
     Indication: Breast cancer metastatic
     Route: 065
     Dates: start: 202108

REACTIONS (6)
  - Metastases to central nervous system [Unknown]
  - Metastases to liver [Unknown]
  - Metastases to bone [Unknown]
  - Pulmonary mass [Unknown]
  - Hepatic steatosis [Unknown]
  - Therapy partial responder [Unknown]
